FAERS Safety Report 4463773-8 (Version None)
Quarter: 2004Q3

REPORT INFORMATION
  Report Type: 
  Country: None (occurrence: None)
  Receive Date: 20040929
  Receipt Date: 20040917
  Transmission Date: 20050211
  Serious: Yes (Life-Threatening, Hospitalization)
  Sender: FDA-Public Use
  Company Number: 04H-118-0274215-00

PATIENT
  Age: 51 Year
  Sex: Male
  Weight: 128 kg

DRUGS (3)
  1. SUCCINYLCHOLINE CHLORIDE [Suspect]
     Indication: TRACHEOSTOMY
     Dosage: 100 MG
  2. PROPOFOL [Concomitant]
  3. OXYGEN [Concomitant]

REACTIONS (6)
  - CARDIAC ARREST [None]
  - HYPERKALAEMIA [None]
  - OXYGEN SATURATION DECREASED [None]
  - PULSE ABSENT [None]
  - THERAPY NON-RESPONDER [None]
  - VENTRICULAR TACHYCARDIA [None]
